FAERS Safety Report 7158981-1 (Version None)
Quarter: 2010Q4

REPORT INFORMATION
  Report Type: 
  Country: None (occurrence: None)
  Receive Date: 20101214
  Receipt Date: 20101201
  Transmission Date: 20110411
  Serious: Yes (Other)
  Sender: FDA-Public Use
  Company Number: CA-ELI_LILLY_AND_COMPANY-CA201012000208

PATIENT
  Sex: Female

DRUGS (4)
  1. ZYPREXA [Suspect]
     Dosage: 2.5 MG, UNKNOWN
     Route: 048
  2. ZYPREXA [Suspect]
     Dosage: 5 MG, UNKNOWN
     Route: 048
  3. NOVO-OLANZAPINE [Concomitant]
     Dosage: 2.5 MG, UNKNOWN
     Route: 048
  4. NOVO-OLANZAPINE [Concomitant]
     Dosage: 5 MG, UNKNOWN
     Route: 048

REACTIONS (4)
  - ANXIETY [None]
  - BLOOD CREATININE INCREASED [None]
  - DIABETES MELLITUS [None]
  - RENAL FAILURE CHRONIC [None]
